FAERS Safety Report 7142614-4 (Version None)
Quarter: 2010Q4

REPORT INFORMATION
  Report Type: 
  Country: None (occurrence: None)
  Receive Date: 20101207
  Receipt Date: 20101203
  Transmission Date: 20110411
  Serious: Yes (Hospitalization)
  Sender: FDA-Public Use
  Company Number: US-ROXANE LABORATORIES, INC.-2010-RO-01571RO

PATIENT
  Age: 64 Year
  Sex: Female

DRUGS (1)
  1. DEXAMETHASONE [Suspect]
     Indication: CENTRAL NERVOUS SYSTEM LYMPHOMA
     Route: 042

REACTIONS (7)
  - AORTIC STENOSIS [None]
  - BLOOD LACTATE DEHYDROGENASE INCREASED [None]
  - LEGIONELLA INFECTION [None]
  - LUNG ABSCESS [None]
  - LUNG NEOPLASM [None]
  - ORGANISING PNEUMONIA [None]
  - WHITE BLOOD CELL COUNT INCREASED [None]
